FAERS Safety Report 20217805 (Version 1)
Quarter: 2021Q4

REPORT INFORMATION
  Report Type: Spontaneous
  Country: US (occurrence: US)
  Receive Date: 20211222
  Receipt Date: 20211222
  Transmission Date: 20220303
  Serious: No
  Sender: FDA-Public Use
  Company Number: US-BioHaven Pharmaceuticals-2021BHV000416

PATIENT

DRUGS (3)
  1. NURTEC ODT [Suspect]
     Active Substance: RIMEGEPANT SULFATE
     Indication: Migraine
     Route: 048
  2. TYLENOL WITH CODEINE [Concomitant]
     Active Substance: ACETAMINOPHEN\CODEINE PHOSPHATE
     Indication: Migraine
  3. TYLENOL WITH CODEINE [Concomitant]
     Active Substance: ACETAMINOPHEN\CODEINE PHOSPHATE
     Indication: Migraine

REACTIONS (3)
  - Therapeutic product effect delayed [Unknown]
  - Tension headache [Recovering/Resolving]
  - Dyspepsia [Recovering/Resolving]

NARRATIVE: CASE EVENT DATE: 20210923
